FAERS Safety Report 14488461 (Version 2)
Quarter: 2018Q1

REPORT INFORMATION
  Report Type: Spontaneous
  Country: PL (occurrence: PL)
  Receive Date: 20180205
  Receipt Date: 20180302
  Transmission Date: 20180509
  Serious: Yes (Other)
  Sender: FDA-Public Use
  Company Number: PL-009507513-1801POL010745

PATIENT
  Age: 61 Year
  Sex: Male

DRUGS (6)
  1. TEMODAL [Suspect]
     Active Substance: TEMOZOLOMIDE
     Indication: ACTH-PRODUCING PITUITARY TUMOUR
     Dosage: (150-200 MG/M2) ONCE DAILY
     Route: 048
     Dates: start: 201504, end: 201512
  2. TEMODAL [Suspect]
     Active Substance: TEMOZOLOMIDE
     Dosage: 320 MG, QD (FOR FIVE CONSECUTIVE DAYS (28-DAY CYCLE))
     Route: 048
  3. KETOCONAZOLE. [Concomitant]
     Active Substance: KETOCONAZOLE
     Dosage: 600 MG, UNK
  4. TRIMETHOPRIM. [Concomitant]
     Active Substance: TRIMETHOPRIM
  5. ONDANSETRON [Concomitant]
     Active Substance: ONDANSETRON
  6. TEMODAL [Suspect]
     Active Substance: TEMOZOLOMIDE
     Indication: MALIGNANT GLIOMA
     Dosage: 1 DOSAGE FORM, QD (150-200 MG/M2 FOR FIVE CONSECUTIVE DAYS (28-DAY CYCLE))

REACTIONS (4)
  - Deafness [Unknown]
  - Nausea [Unknown]
  - Off label use [Unknown]
  - Drug effect incomplete [Unknown]
